FAERS Safety Report 15878299 (Version 1)
Quarter: 2019Q1

REPORT INFORMATION
  Report Type: Spontaneous
  Country: US (occurrence: US)
  Receive Date: 20190103
  Receipt Date: 20190103
  Transmission Date: 20190417
  Serious: No
  Sender: FDA-Public Use
  Company Number: None

PATIENT
  Age: 76 Year
  Sex: Female
  Weight: 83.01 kg

DRUGS (1)
  1. TREMFYA [Suspect]
     Active Substance: GUSELKUMAB
     Indication: PSORIASIS
     Dosage: ?          OTHER FREQUENCY:ON WEEK 0 AND WEEK 4?
     Route: 058
     Dates: start: 201810

REACTIONS (3)
  - Pneumonia [None]
  - Oxygen saturation decreased [None]
  - Hypertension [None]
